FAERS Safety Report 6765888-8 (Version None)
Quarter: 2010Q2

REPORT INFORMATION
  Report Type: 
  Country: None (occurrence: None)
  Receive Date: 20100611
  Receipt Date: 20100608
  Transmission Date: 20101027
  Serious: Yes (Hospitalization)
  Sender: FDA-Public Use
  Company Number: ES-ROCHE-708258

PATIENT
  Sex: Male

DRUGS (2)
  1. CAPECITABINE [Suspect]
     Dosage: 14 DAYS, LAST DOSE PRIOR TO SAE 03 MAY 2010
     Route: 048
     Dates: start: 20100428
  2. OXALIPLATIN [Suspect]
     Dosage: LAST DOSE PRIOR TO SAE: 19 MAY 2010
     Route: 042
     Dates: start: 20100428

REACTIONS (1)
  - INTESTINAL PERFORATION [None]
